FAERS Safety Report 20089958 (Version 1)
Quarter: 2021Q4

REPORT INFORMATION
  Report Type: Spontaneous
  Country: US (occurrence: None)
  Receive Date: 20211118
  Receipt Date: 20211118
  Transmission Date: 20220303
  Serious: No
  Sender: FDA-Public Use
  Company Number: None

PATIENT
  Sex: Female

DRUGS (2)
  1. EVEROLIMUS [Suspect]
     Active Substance: EVEROLIMUS
     Indication: Breast cancer
     Dosage: FREQUENCY : DAILY;?
     Route: 048
     Dates: start: 20211026
  2. TAMOXIFEN CITRATE [Suspect]
     Active Substance: TAMOXIFEN CITRATE
     Indication: Breast cancer
     Dosage: FREQUENCY : DAILY;?
     Route: 048
     Dates: start: 20211026

REACTIONS (10)
  - Stomatitis [None]
  - Pain in jaw [None]
  - Tooth infection [None]
  - Chills [None]
  - Nausea [None]
  - Pain [None]
  - Breast induration [None]
  - Biopsy site unspecified abnormal [None]
  - Breast mass [None]
  - Fatigue [None]
